FAERS Safety Report 15179821 (Version 1)
Quarter: 2018Q3

REPORT INFORMATION
  Report Type: Spontaneous
  Country: IL (occurrence: IL)
  Receive Date: 20180723
  Receipt Date: 20180723
  Transmission Date: 20181010
  Serious: Yes (Death, Hospitalization, Other)
  Sender: FDA-Public Use
  Company Number: IL-ACCORD-069735

PATIENT
  Age: 82 Year
  Sex: Male
  Weight: 66.7 kg

DRUGS (26)
  1. PEMETREXED. [Suspect]
     Active Substance: PEMETREXED
     Indication: NON-SMALL CELL LUNG CANCER METASTATIC
     Route: 042
     Dates: start: 20180228, end: 20180502
  2. STATOR [Concomitant]
     Dosage: STRENGTH: 10 MG
     Dates: start: 200201
  3. TARGIN [Concomitant]
     Active Substance: NALOXONE HYDROCHLORIDE\OXYCODONE HYDROCHLORIDE
     Dosage: STRENGTH: 10 MG
     Dates: start: 20170516
  4. DAKTARIN [Concomitant]
     Active Substance: MICONAZOLE NITRATE
     Dosage: STRENGTH: 2%
     Dates: start: 20170510
  5. LAXADIN [Concomitant]
     Active Substance: BISACODYL
     Dosage: STRENGTH: 10 MG
     Dates: start: 20170531
  6. EPACADOSTAT [Suspect]
     Active Substance: EPACADOSTAT
     Indication: NON-SMALL CELL LUNG CANCER METASTATIC
     Dosage: STRENGTH: 100 MG
     Route: 048
     Dates: start: 20180228, end: 20180531
  7. SODIUM CHLORIDE. [Concomitant]
     Active Substance: SODIUM CHLORIDE
     Dosage: STRENGTH: 1000 ML
     Dates: start: 20170509, end: 20180605
  8. PEMBROLIZUMAB. [Suspect]
     Active Substance: PEMBROLIZUMAB
     Indication: NON-SMALL CELL LUNG CANCER METASTATIC
     Route: 042
     Dates: start: 20180228, end: 20180531
  9. OPTALGIN [Concomitant]
     Active Substance: METAMIZOLE
     Dosage: STRENGTH: 500 MG
     Dates: start: 201712
  10. MAGNESIUM HYDROXIDE. [Concomitant]
     Active Substance: MAGNESIUM HYDROXIDE
     Dosage: STRENGTH: 100 MG
     Dates: start: 20170510
  11. AVILAC [Concomitant]
     Dosage: STRENGTH: 15 ML
     Dates: start: 20170424
  12. XARELTO [Concomitant]
     Active Substance: RIVAROXABAN
     Dosage: STRENGTH: 20 MG
     Dates: start: 20170408, end: 20180513
  13. ROCEPHIN [Concomitant]
     Active Substance: CEFTRIAXONE SODIUM
     Dosage: STRENGTH: 1 GM
     Dates: start: 20170605, end: 20180605
  14. SLOW?K [Concomitant]
     Active Substance: POTASSIUM CHLORIDE
     Dosage: STRENGTH: 600 MG
     Dates: start: 20170511
  15. TEVAGRASTIM [Concomitant]
     Active Substance: FILGRASTIM
     Dosage: STRENGTH: 480 MCG
     Dates: start: 20170606, end: 20180606
  16. DEXAMETHASONE. [Concomitant]
     Active Substance: DEXAMETHASONE
     Dosage: STRENGTH: 12 MG
     Dates: start: 20170531, end: 20180530
  17. CARBOPLATIN. [Suspect]
     Active Substance: CARBOPLATIN
     Indication: NON-SMALL CELL LUNG CANCER METASTATIC
     Route: 042
     Dates: start: 20180228, end: 20180502
  18. SERETIDE [Concomitant]
     Active Substance: FLUTICASONE PROPIONATE\SALMETEROL XINAFOATE
     Dosage: 1 DF
     Dates: start: 200201
  19. LOSEC [Concomitant]
     Active Substance: OMEPRAZOLE
     Dosage: STRENGTH: 20 MG
     Dates: start: 20170531, end: 20180531
  20. FOLIC ACID. [Concomitant]
     Active Substance: FOLIC ACID
     Dosage: STRENGTH: 400 MCG
     Dates: start: 20170215
  21. MORPHINE [Concomitant]
     Active Substance: MORPHINE
     Dosage: STRENGTH: 12 MG
     Dates: start: 20170510, end: 20180512
  22. CLEXANE [Concomitant]
     Active Substance: ENOXAPARIN SODIUM
     Dosage: STRENGTH: 40 MG
     Dates: start: 20170605
  23. AKYNZEO [Concomitant]
     Active Substance: NETUPITANT\PALONOSETRON HYDROCHLORIDE
     Dosage: STRENGTH: 300 MG
     Dates: start: 20170531, end: 20180531
  24. AMIODARONE HYDROCHLORIDE. [Concomitant]
     Active Substance: AMIODARONE HYDROCHLORIDE
     Dosage: STRENGTH: 200 MG
     Dates: start: 20170422, end: 20180427
  25. ENSURE [Concomitant]
     Active Substance: AMINO ACIDS\DEXTROSE\ELECTROLYTES NOS\SOYBEAN OIL\VITAMINS
     Dosage: STRENGTH: 237 ML
     Dates: start: 20170408
  26. PERCOCET [Concomitant]
     Active Substance: ACETAMINOPHEN\OXYCODONE HYDROCHLORIDE
     Dosage: STRENGTH: 5 MG
     Dates: start: 20170509

REACTIONS (6)
  - Anaemia [Recovering/Resolving]
  - Transient ischaemic attack [Unknown]
  - Constipation [Unknown]
  - Neutropenia [Unknown]
  - Stomatitis [Recovered/Resolved]
  - Diarrhoea [Recovering/Resolving]

NARRATIVE: CASE EVENT DATE: 20180404
